FAERS Safety Report 12059642 (Version 3)
Quarter: 2016Q1

REPORT INFORMATION
  Report Type: Report from Study
  Country: AR (occurrence: AR)
  Receive Date: 20160210
  Receipt Date: 20160315
  Transmission Date: 20160526
  Serious: Yes (Disabling, Other)
  Sender: FDA-Public Use
  Company Number: PHHY2016AR017395

PATIENT
  Age: 59 Year
  Sex: Female

DRUGS (2)
  1. TASIGNA [Suspect]
     Active Substance: NILOTINIB
     Indication: CHRONIC MYELOID LEUKAEMIA
     Dosage: 2 DF, BID
     Route: 048
     Dates: start: 200509
  2. IBUPROFEN. [Concomitant]
     Active Substance: IBUPROFEN
     Indication: BONE PAIN
     Dosage: 600 OT, BID (IN THE MORNING AND ONE IN THE AFTERNOON)
     Route: 065

REACTIONS (10)
  - Peripheral swelling [Unknown]
  - Pain in extremity [Unknown]
  - Scratch [Recovered/Resolved]
  - Haemarthrosis [Not Recovered/Not Resolved]
  - Joint dislocation [Recovering/Resolving]
  - Injury [Recovered/Resolved]
  - Ligament injury [Not Recovered/Not Resolved]
  - Exostosis [Not Recovered/Not Resolved]
  - Haematoma [Recovering/Resolving]
  - Fall [Recovered/Resolved]

NARRATIVE: CASE EVENT DATE: 201601
